FAERS Safety Report 5140843-2 (Version None)
Quarter: 2006Q4

REPORT INFORMATION
  Report Type: 
  Country: None (occurrence: None)
  Receive Date: 20061026
  Receipt Date: 20061017
  Transmission Date: 20070319
  Serious: Yes (Hospitalization)
  Sender: FDA-Public Use
  Company Number: 2006126639

PATIENT
  Age: 73 Year
  Sex: Female

DRUGS (6)
  1. AROMASIN [Suspect]
     Dosage: 25 MG (25 MG, 1 IN 1 D) ORAL
     Route: 048
     Dates: start: 20060515
  2. LEVOTHYROXINE SODIUM [Suspect]
     Dosage: 75 MCG (1 IN 1 D) ORAL
     Route: 048
  3. LORAZEPAM [Suspect]
     Dosage: 1 MG (1 IN 1 D) ORAL
     Route: 048
     Dates: end: 20060629
  4. CAPECITABINE (CAPECITABINE) [Suspect]
     Dosage: 3000 MG (1500 MG, 2 IN 1 D) ORAL
     Route: 048
     Dates: start: 20060615, end: 20060629
  5. CLOPIDOGREL [Suspect]
     Dosage: 75 MG (1 IN 1 D) ORAL
     Route: 048
     Dates: end: 20060627
  6. DIAZEPAM [Concomitant]

REACTIONS (14)
  - ABDOMINAL PAIN UPPER [None]
  - BLOOD THYROID STIMULATING HORMONE INCREASED [None]
  - CEREBROVASCULAR ACCIDENT [None]
  - CHOLESTASIS [None]
  - COUGH [None]
  - DEPRESSION [None]
  - DYSPNOEA [None]
  - EPILEPSY [None]
  - LEUKOENCEPHALOPATHY [None]
  - LYMPHOPENIA [None]
  - OEDEMA PERIPHERAL [None]
  - PITTING OEDEMA [None]
  - PLEURAL EFFUSION [None]
  - THYROXINE DECREASED [None]
